FAERS Safety Report 4918688-5 (Version None)
Quarter: 2006Q1

REPORT INFORMATION
  Report Type: 
  Country: None (occurrence: None)
  Receive Date: 20060216
  Receipt Date: 20060201
  Transmission Date: 20060701
  Serious: Yes (Death, Life-Threatening, Hospitalization)
  Sender: FDA-Public Use
  Company Number: 221969

PATIENT
  Age: 79 Year
  Sex: 0

DRUGS (2)
  1. AVASTIN [Suspect]
     Indication: PANCREATIC CARCINOMA
     Dosage: 5 MG/KG, INTRAVENOUS
     Route: 042
     Dates: start: 20051116, end: 20051214
  2. GEMCITABINE (GEMCITABINE HYDROCHLORIDE) [Suspect]
     Indication: PANCREATIC CARCINOMA
     Dosage: 1 G/M2, INTRAVENOUS
     Route: 042
     Dates: start: 20051116, end: 20051214

REACTIONS (8)
  - DEHYDRATION [None]
  - DISEASE PROGRESSION [None]
  - HYPOTENSION [None]
  - HYPOXIA [None]
  - PANCREATIC MASS [None]
  - PULMONARY EMBOLISM [None]
  - THROMBOSIS [None]
  - URINARY TRACT INFECTION [None]
